FAERS Safety Report 19226355 (Version 2)
Quarter: 2021Q2

REPORT INFORMATION
  Report Type: Report from Study
  Country: None (occurrence: IT)
  Receive Date: 20210505
  Receipt Date: 20210609
  Transmission Date: 20210717
  Serious: Yes (Death, Hospitalization, Other)
  Sender: FDA-Public Use
  Company Number: IT-ABBVIE-21K-083-3885519-00

PATIENT
  Age: 56 Year
  Sex: Female

DRUGS (3)
  1. NAVITOCLAX [Concomitant]
     Active Substance: NAVITOCLAX
     Indication: LYMPHOCYTIC LEUKAEMIA
  2. VENETOCLAX. [Suspect]
     Active Substance: VENETOCLAX
     Indication: LYMPHOCYTIC LEUKAEMIA
     Route: 048
     Dates: start: 20210423, end: 202104
  3. VENETOCLAX. [Suspect]
     Active Substance: VENETOCLAX
     Route: 048
     Dates: start: 202104, end: 2021

REACTIONS (8)
  - Interstitial lung disease [Unknown]
  - Blood potassium increased [Unknown]
  - White blood cell count decreased [Recovering/Resolving]
  - Red blood cell schistocytes present [Unknown]
  - Off label use [Unknown]
  - Lymphocytic leukaemia [Fatal]
  - Respiratory failure [Unknown]
  - Cell death [Unknown]

NARRATIVE: CASE EVENT DATE: 202104
